FAERS Safety Report 5049215-2 (Version None)
Quarter: 2006Q3

REPORT INFORMATION
  Report Type: 
  Country: None (occurrence: None)
  Receive Date: 20060712
  Receipt Date: 20060705
  Transmission Date: 20061208
  Serious: Yes (Hospitalization)
  Sender: FDA-Public Use
  Company Number: US-JNJFOC-20060701027

PATIENT
  Sex: Female
  Weight: 56.7 kg

DRUGS (6)
  1. LEVAQUIN [Suspect]
     Indication: PNEUMONIA
     Route: 048
  2. PLAVIX [Concomitant]
     Indication: ANTICOAGULANT THERAPY
  3. LOVASTATIN [Concomitant]
     Indication: BLOOD CHOLESTEROL DECREASED
  4. LISINOPRIL [Concomitant]
     Indication: BLOOD PRESSURE
  5. NICARDIPINE [Concomitant]
     Indication: ANGINA PECTORIS
  6. DIPYRIDAMOLE [Concomitant]
     Indication: ANTICOAGULANT THERAPY

REACTIONS (2)
  - HALLUCINATION [None]
  - INCORRECT DOSE ADMINISTERED [None]
